FAERS Safety Report 4947128-5 (Version None)
Quarter: 2006Q1

REPORT INFORMATION
  Report Type: 
  Country: None (occurrence: None)
  Receive Date: 20060201
  Receipt Date: 20051208
  Transmission Date: 20060701
  Serious: No
  Sender: FDA-Public Use
  Company Number: 2005PV005595

PATIENT
  Age: 56 Year
  Sex: Female
  Weight: 66.6788 kg

DRUGS (4)
  1. BYETTA [Suspect]
     Indication: DIABETES MELLITUS NON-INSULIN-DEPENDENT
     Dosage: 10 MCG; SC, 5 MCG; BID; SC
     Route: 058
     Dates: start: 20050901, end: 20051001
  2. BYETTA [Suspect]
     Indication: DIABETES MELLITUS NON-INSULIN-DEPENDENT
     Dosage: 10 MCG; SC, 5 MCG; BID; SC
     Route: 058
     Dates: start: 20051001, end: 20051101
  3. METFORMIN [Suspect]
     Indication: DIABETES MELLITUS NON-INSULIN-DEPENDENT
     Dosage: 500 MG; BID; PO, 500 MG; BID; PO
     Route: 048
     Dates: start: 20050601, end: 20051101
  4. METFORMIN [Suspect]
     Indication: DIABETES MELLITUS NON-INSULIN-DEPENDENT
     Dosage: 500 MG; BID; PO, 500 MG; BID; PO
     Route: 048
     Dates: start: 20051101

REACTIONS (6)
  - DIARRHOEA [None]
  - DYSGEUSIA [None]
  - INJECTION SITE BRUISING [None]
  - INJECTION SITE HAEMORRHAGE [None]
  - INJECTION SITE PAIN [None]
  - NAUSEA [None]
